FAERS Safety Report 10008014 (Version 7)
Quarter: 2014Q2

REPORT INFORMATION
  Report Type: Spontaneous
  Country: US (occurrence: US)
  Receive Date: 20140313
  Receipt Date: 20140410
  Transmission Date: 20141212
  Serious: Yes (Life-Threatening, Hospitalization, Other)
  Sender: FDA-Public Use
  Company Number: US-JNJFOC-20140306509

PATIENT
  Age: 89 Year
  Sex: Male
  Weight: 122.47 kg

DRUGS (14)
  1. XARELTO [Suspect]
     Indication: CEREBROVASCULAR ACCIDENT PROPHYLAXIS
     Route: 048
     Dates: start: 20130909, end: 20131108
  2. XARELTO [Suspect]
     Indication: ATRIAL FIBRILLATION
     Route: 048
     Dates: start: 20130909, end: 20131108
  3. ESCITALOPRAM [Concomitant]
     Route: 048
  4. ALUMINIUM W/MAGNESIUM HYDROXIDE/SIMETICONE [Concomitant]
     Indication: DYSPEPSIA
     Dosage: 400-400-40 MG/5ML DOSE EVERY 6 HOURS AS NECESSARY
     Route: 048
  5. FUROSEMIDE [Concomitant]
     Route: 048
  6. ACETAMINOPHEN [Concomitant]
     Indication: PYREXIA
     Dosage: AS NECESSARY
     Route: 048
  7. ACETAMINOPHEN [Concomitant]
     Indication: PAIN
     Dosage: AS NECESSARY
     Route: 048
  8. PROMETHAZINE [Concomitant]
     Indication: VOMITING
     Dosage: AS NECESSARY
     Route: 048
  9. PROMETHAZINE [Concomitant]
     Indication: NAUSEA
     Dosage: AS NECESSARY
     Route: 048
  10. PANTOPRAZOLE [Concomitant]
     Route: 048
  11. ALPRAZOLAM [Concomitant]
     Dosage: AS NECESSARY
     Route: 048
  12. DEXTROMETHORPHAN/GUAIFENESIN [Concomitant]
     Indication: COUGH
     Dosage: AS NECESSARY
     Route: 048
  13. FERROUS SULFATE [Concomitant]
     Dosage: 65 MG IRON
     Route: 048
  14. POTASSIUM CHLORIDE [Concomitant]
     Route: 048

REACTIONS (3)
  - Gastrointestinal haemorrhage [Recovering/Resolving]
  - Haemoglobin decreased [Recovering/Resolving]
  - Incorrect dose administered [Unknown]
